FAERS Safety Report 4284629-X (Version None)
Quarter: 2004Q1

REPORT INFORMATION
  Report Type: 
  Country: None (occurrence: None)
  Receive Date: 20040130
  Receipt Date: 20040130
  Transmission Date: 20041129
  Serious: No
  Sender: FDA-Public Use
  Company Number: None

PATIENT
  Sex: Female
  Weight: 77.1115 kg

DRUGS (12)
  1. ACTONEL [Suspect]
     Indication: OSTEOPOROSIS
     Dosage: 5 MG PO QD
     Route: 048
     Dates: start: 20030821, end: 20031101
  2. PREMARIN [Concomitant]
  3. SYNTHROID [Concomitant]
  4. METHOTREXATE [Concomitant]
  5. ASPIRIN [Concomitant]
  6. VITAMIN D [Concomitant]
  7. MULTI-VITAMIN [Concomitant]
  8. VITAMIN C [Concomitant]
  9. CALCIUM CARBONATE [Concomitant]
  10. ANTACID (CALCIUM CARBONATE) [Concomitant]
  11. REMICADE [Concomitant]
  12. LEUCOVORIN [Concomitant]

REACTIONS (3)
  - ARTHRALGIA [None]
  - DIZZINESS [None]
  - MYALGIA [None]
